FAERS Safety Report 12548743 (Version 5)
Quarter: 2016Q3

REPORT INFORMATION
  Report Type: Spontaneous
  Country: CN (occurrence: CN)
  Receive Date: 20160712
  Receipt Date: 20160811
  Transmission Date: 20161109
  Serious: Yes (Death, Hospitalization, Other)
  Sender: FDA-Public Use
  Company Number: CN-SA-2016SA126875

PATIENT
  Age: 58 Year
  Sex: Female
  Weight: 41 kg

DRUGS (12)
  1. VORICONAZOLE. [Concomitant]
     Active Substance: VORICONAZOLE
     Indication: ANTI-INFECTIVE THERAPY
     Route: 041
     Dates: start: 20160417, end: 20160423
  2. VANCOMYCIN [Concomitant]
     Active Substance: VANCOMYCIN
     Indication: ANTI-INFECTIVE THERAPY
     Dosage: DOSE: 100*10^4U/Q12H
     Route: 041
     Dates: start: 20160411, end: 20160415
  3. SULBACTAM SODIUM/PIPERACILLIN [Concomitant]
     Indication: ANTI-INFECTIVE THERAPY
     Dosage: DOSE: 4.5
     Route: 041
     Dates: start: 20160421, end: 20160422
  4. NIFEDIPINE. [Concomitant]
     Active Substance: NIFEDIPINE
     Indication: HYPERTENSION
     Route: 048
     Dates: start: 20160422, end: 20160423
  5. CILASTATIN/IMIPENEM [Concomitant]
     Indication: ANTI-INFECTIVE THERAPY
     Dates: start: 201604, end: 20160423
  6. VOLTAREN [Concomitant]
     Active Substance: DICLOFENAC SODIUM
     Indication: PAIN
     Dates: start: 20160418
  7. IMIPENEM [Concomitant]
     Active Substance: IMIPENEM
     Indication: ANTI-INFECTIVE THERAPY
     Route: 041
     Dates: start: 20160411, end: 20160420
  8. IMIPENEM [Concomitant]
     Active Substance: IMIPENEM
     Indication: ANTI-INFECTIVE THERAPY
     Route: 041
     Dates: start: 20160408, end: 20160411
  9. TEICOPLANIN [Concomitant]
     Active Substance: TEICOPLANIN
     Indication: ANTI-INFECTIVE THERAPY
     Dosage: O.4/QD
     Route: 041
     Dates: start: 20160408, end: 20160411
  10. IMIPENEM [Concomitant]
     Active Substance: IMIPENEM
     Indication: ANTI-INFECTIVE THERAPY
     Route: 041
     Dates: start: 20160423, end: 20160424
  11. THYMOGLOBULINE [Suspect]
     Active Substance: LAPINE T-LYMPHOCYTE IMMUNE GLOBULIN
     Indication: APLASTIC ANAEMIA
     Dosage: 11.76MG/KG TOGALLY 24 VIALS
     Route: 041
     Dates: start: 20160421, end: 20160424
  12. TAZOCIN [Concomitant]
     Active Substance: PIPERACILLIN SODIUM\TAZOBACTAM SODIUM
     Indication: ANTI-INFECTIVE THERAPY
     Dosage: 4.5Q6H
     Route: 041
     Dates: start: 20160420, end: 20160421

REACTIONS (10)
  - Cough [Not Recovered/Not Resolved]
  - Productive cough [Not Recovered/Not Resolved]
  - Dyspnoea [Not Recovered/Not Resolved]
  - Pulmonary haemorrhage [Fatal]
  - Stenotrophomonas infection [Unknown]
  - Chest discomfort [Not Recovered/Not Resolved]
  - Pyrexia [Not Recovered/Not Resolved]
  - Haemoptysis [Fatal]
  - Sepsis [Not Recovered/Not Resolved]
  - Lung infection [Not Recovered/Not Resolved]

NARRATIVE: CASE EVENT DATE: 20160423
